FAERS Safety Report 9040176 (Version 1)
Quarter: 2013Q1

REPORT INFORMATION
  Report Type: Report from Study
  Country: US (occurrence: US)
  Receive Date: 20130129
  Receipt Date: 20130129
  Transmission Date: 20140127
  Serious: No
  Sender: FDA-Public Use
  Company Number: US-ABBOTT-12P-163-0891778-00

PATIENT
  Age: 85 Year
  Sex: Female

DRUGS (8)
  1. HUMIRA 40 MG/0.8 ML PEN [Suspect]
     Indication: TEMPORAL ARTERITIS
  2. TENORMIN [Concomitant]
     Indication: HYPERTENSION
     Dosage: DAILY
  3. NORVASC [Concomitant]
     Indication: HYPERTENSION
     Dosage: DAILY
  4. BUMEX [Concomitant]
     Indication: PRODUCT USED FOR UNKNOWN INDICATION
     Dosage: DAILY
  5. HYDROCODONE [Concomitant]
     Indication: PRODUCT USED FOR UNKNOWN INDICATION
  6. NEURONTIN [Concomitant]
     Indication: BACK PAIN
  7. SYNTHROID [Concomitant]
     Indication: HYPOTHYROIDISM
  8. PRILOSEC [Concomitant]
     Indication: GASTROOESOPHAGEAL REFLUX DISEASE

REACTIONS (1)
  - Injection site pain [Unknown]
